FAERS Safety Report 5263511-5 (Version None)
Quarter: 2007Q1

REPORT INFORMATION
  Report Type: 
  Country: None (occurrence: None)
  Receive Date: 20070313
  Receipt Date: 20070306
  Transmission Date: 20070707
  Serious: Yes (Hospitalization)
  Sender: FDA-Public Use
  Company Number: US-AVENTIS-200711556US

PATIENT
  Sex: Female

DRUGS (1)
  1. KETEK [Suspect]
     Indication: INFECTION
     Dosage: DOSE: UNK
     Route: 048
     Dates: start: 20060301

REACTIONS (1)
  - HEPATOCELLULAR DAMAGE [None]
